FAERS Safety Report 7944035-0 (Version None)
Quarter: 2011Q4

REPORT INFORMATION
  Report Type: 
  Country: None (occurrence: None)
  Receive Date: 20111128
  Receipt Date: 20111118
  Transmission Date: 20120403
  Serious: Yes (Other)
  Sender: FDA-Public Use
  Company Number: US-ASTRAZENECA-2011SE70647

PATIENT
  Age: 52 Year
  Sex: Female

DRUGS (2)
  1. NEXIUM [Suspect]
     Route: 048
  2. NAPROXEN (ALEVE) [Concomitant]

REACTIONS (6)
  - CHOLELITHIASIS [None]
  - WEIGHT DECREASED [None]
  - GASTRITIS [None]
  - CHOLECYSTITIS INFECTIVE [None]
  - ADVERSE EVENT [None]
  - BARRETT'S OESOPHAGUS [None]
